FAERS Safety Report 8165320-6 (Version None)
Quarter: 2012Q1

REPORT INFORMATION
  Report Type: 
  Country: None (occurrence: None)
  Receive Date: 20120222
  Receipt Date: 20120222
  Transmission Date: 20120608
  Serious: Yes (Other)
  Sender: FDA-Public Use
  Company Number: None

PATIENT
  Sex: Female
  Weight: 82.16 kg

DRUGS (3)
  1. SYNTHROID [Concomitant]
  2. VITAMIN B PLUS [Concomitant]
  3. JAKAFI [Suspect]
     Indication: MYELOFIBROSIS
     Dosage: 20MG BID PO
     Route: 048
     Dates: start: 20120126, end: 20120221

REACTIONS (3)
  - HAEMORRHAGE [None]
  - EPISTAXIS [None]
  - MELAENA [None]
